FAERS Safety Report 4829384-7 (Version None)
Quarter: 2005Q4

REPORT INFORMATION
  Report Type: 
  Country: None (occurrence: None)
  Receive Date: 20051028
  Receipt Date: 20050322
  Transmission Date: 20060501
  Serious: No
  Sender: FDA-Public Use
  Company Number: US122268

PATIENT

DRUGS (1)
  1. SENSIPAR [Suspect]
     Indication: HYPERPARATHYROIDISM SECONDARY
     Dosage: 30 MG
     Dates: start: 20040501, end: 20050320

REACTIONS (1)
  - NON-CARDIAC CHEST PAIN [None]
